FAERS Safety Report 9908205 (Version 1)
Quarter: 2014Q1

REPORT INFORMATION
  Report Type: Spontaneous
  Country: US (occurrence: US)
  Receive Date: 20140219
  Receipt Date: 20140219
  Transmission Date: 20141002
  Serious: Yes (Other)
  Sender: FDA-Public Use
  Company Number: US-RB-063002-14

PATIENT
  Age: 82 Year
  Sex: Male

DRUGS (4)
  1. MUCINEX DM [Suspect]
     Indication: EMPHYSEMA
     Dosage: 2-4 TABLETS IN EVERY 24 HOURS
     Route: 048
  2. MUCINEX DM [Suspect]
     Indication: INFLUENZA
     Dosage: 2-4 TABLETS IN EVERY 24 HOURS
     Route: 048
  3. MUCINEX DM [Suspect]
     Indication: PNEUMONIA
     Dosage: 2-4 TABLETS IN EVERY 24 HOURS
     Route: 048
  4. MUCINEX DM [Suspect]
     Indication: INCREASED UPPER AIRWAY SECRETION
     Dosage: 2-4 TABLETS IN EVERY 24 HOURS
     Route: 048

REACTIONS (3)
  - Blood pressure increased [Not Recovered/Not Resolved]
  - Off label use [Not Recovered/Not Resolved]
  - Incorrect drug administration duration [Not Recovered/Not Resolved]
